FAERS Safety Report 7207848-9 (Version None)
Quarter: 2010Q4

REPORT INFORMATION
  Report Type: 
  Country: None (occurrence: None)
  Receive Date: 20101221
  Receipt Date: 20101206
  Transmission Date: 20110411
  Serious: Yes (Death)
  Sender: FDA-Public Use
  Company Number: 2010001956

PATIENT
  Age: 73 Year
  Sex: Male
  Weight: 48.5 kg

DRUGS (9)
  1. ERLOTINIB (ERLOTINIB) (TABLET) (ERLOTINIB) [Suspect]
     Indication: LUNG ADENOCARCINOMA
     Dosage: (150 MG, QD), ORAL
     Route: 048
     Dates: start: 20090502, end: 20090609
  2. PANTOSIN (PANTETHINE) [Concomitant]
  3. VALSARTAN [Concomitant]
  4. NORVASC [Concomitant]
  5. METHYCOBAL (MECOBALAMIN) [Concomitant]
  6. MAGNESIUM OXIDE (MAGNESIUM OXIDE) [Concomitant]
  7. FAMOTIDINE [Concomitant]
  8. CODEINE PHOSPHATE (CODEINE PHOSPHATE) [Concomitant]
  9. DIOVAN [Concomitant]

REACTIONS (5)
  - CARDIAC DISORDER [None]
  - CEREBROVASCULAR DISORDER [None]
  - ECZEMA [None]
  - INFECTION [None]
  - NAIL AVULSION [None]
